FAERS Safety Report 13523678 (Version 6)
Quarter: 2018Q1

REPORT INFORMATION
  Report Type: Spontaneous
  Country: US (occurrence: US)
  Receive Date: 20170508
  Receipt Date: 20180116
  Transmission Date: 20180508
  Serious: Yes (Other)
  Sender: FDA-Public Use
  Company Number: US-VIFOR (INTERNATIONAL) INC.-VIT-2017-01165

PATIENT
  Sex: Male
  Weight: 87.17 kg

DRUGS (25)
  1. ALFUZOSIN HYDROCHLORIDE. [Concomitant]
     Active Substance: ALFUZOSIN HYDROCHLORIDE
  2. GLIMEPIRIDE. [Concomitant]
     Active Substance: GLIMEPIRIDE
  3. VELTASSA [Suspect]
     Active Substance: PATIROMER
     Indication: HYPERKALAEMIA
     Route: 048
     Dates: start: 20160614
  4. LIDOCAINE. [Suspect]
     Active Substance: LIDOCAINE
  5. ACETYLSALICYLIC ACID [Concomitant]
     Active Substance: ASPIRIN
  6. CLONIDINE HYDROCHLORIDE. [Concomitant]
     Active Substance: CLONIDINE HYDROCHLORIDE
  7. LORTAB [Concomitant]
     Active Substance: ACETAMINOPHEN\HYDROCODONE BITARTRATE
  8. BYSTOLIC [Concomitant]
     Active Substance: NEBIVOLOL HYDROCHLORIDE
  9. DOCUSATE SODIUM. [Concomitant]
     Active Substance: DOCUSATE SODIUM
  10. OMEPRAZOLE. [Concomitant]
     Active Substance: OMEPRAZOLE
  11. CYANOCOBALAMIN. [Concomitant]
     Active Substance: CYANOCOBALAMIN
  12. ASCORBIC ACID. [Concomitant]
     Active Substance: ASCORBIC ACID
  13. ERGOCALCIFEROL. [Concomitant]
     Active Substance: ERGOCALCIFEROL
  14. TRANDOLAPRIL. [Concomitant]
     Active Substance: TRANDOLAPRIL
  15. AVAPRO [Concomitant]
     Active Substance: IRBESARTAN
  16. BETACAROTENE [Concomitant]
     Active Substance: .BETA.-CAROTENE
  17. CHROMIUM PICOLINATE [Concomitant]
     Active Substance: CHROMIUM PICOLINATE
  18. FUROSEMIDE. [Concomitant]
     Active Substance: FUROSEMIDE
  19. HYDRALAZINE HYDROCHLORIDE. [Concomitant]
     Active Substance: HYDRALAZINE HYDROCHLORIDE
  20. TEMAZEPAM. [Concomitant]
     Active Substance: TEMAZEPAM
  21. MAGNESIUM CHLORIDE. [Concomitant]
     Active Substance: MAGNESIUM CHLORIDE
  22. ACIDOPHILUS [Concomitant]
     Active Substance: LACTOBACILLUS ACIDOPHILUS
  23. ALLOPURINOL. [Concomitant]
     Active Substance: ALLOPURINOL
  24. REMICADE [Concomitant]
     Active Substance: INFLIXIMAB
  25. MAGNESIUM GLUCONATE [Concomitant]
     Active Substance: MAGNESIUM GLUCONATE

REACTIONS (9)
  - Postoperative wound infection [Recovered/Resolved]
  - Skin exfoliation [Recovered/Resolved]
  - Squamous cell carcinoma [Not Recovered/Not Resolved]
  - Hypersensitivity [Unknown]
  - Blood magnesium decreased [Recovering/Resolving]
  - Constipation [Recovering/Resolving]
  - Rash pruritic [Unknown]
  - Rash [Not Recovered/Not Resolved]
  - Skin lesion [Unknown]

NARRATIVE: CASE EVENT DATE: 2017
